FAERS Safety Report 16960056 (Version 2)
Quarter: 2019Q4

REPORT INFORMATION
  Report Type: Report from Study
  Country: None (occurrence: IT)
  Receive Date: 20191025
  Receipt Date: 20191029
  Transmission Date: 20200122
  Serious: Yes (Hospitalization)
  Sender: FDA-Public Use
  Company Number: IT-ABBVIE-19K-083-2971834-00

PATIENT
  Age: 84 Year
  Sex: Male

DRUGS (3)
  1. VENETOCLAX. [Suspect]
     Active Substance: VENETOCLAX
     Indication: LEUKAEMIA
     Dosage: FARMACI INTERAGENTI
     Route: 048
  2. PEMBROLIZUMAB. [Interacting]
     Active Substance: PEMBROLIZUMAB
     Indication: LEUKAEMIA
     Dosage: FARMACI INTERAGENTI
     Route: 042
     Dates: start: 20190627, end: 20190816
  3. DECITABINE. [Interacting]
     Active Substance: DECITABINE
     Indication: LEUKAEMIA
     Dosage: FARMACI INTERAGENTI
     Route: 048

REACTIONS (5)
  - Abscess [Recovering/Resolving]
  - Thrombocytopenia [Recovering/Resolving]
  - Pancytopenia [Recovering/Resolving]
  - Leukopenia [Recovering/Resolving]
  - Drug interaction [Recovering/Resolving]

NARRATIVE: CASE EVENT DATE: 20190817
